FAERS Safety Report 13698151 (Version 2)
Quarter: 2017Q2

REPORT INFORMATION
  Report Type: Spontaneous
  Country: FR (occurrence: FR)
  Receive Date: 20170628
  Receipt Date: 20170630
  Transmission Date: 20170830
  Serious: Yes (Hospitalization)
  Sender: FDA-Public Use
  Company Number: FR-PFIZER INC-2017276492

PATIENT
  Age: 49 Year
  Sex: Male

DRUGS (6)
  1. GEMCITABINE HYDROCHLORIDE. [Suspect]
     Active Substance: GEMCITABINE HYDROCHLORIDE
     Indication: T-CELL LYMPHOMA
     Dosage: 1900 MG, CYCLIC
     Route: 042
     Dates: start: 20161108, end: 20161205
  2. HOLOXAN [Suspect]
     Active Substance: IFOSFAMIDE
     Indication: T-CELL LYMPHOMA
     Dosage: 2500 MG, DAY1 AND D2, CYCLIC
     Route: 042
     Dates: start: 20170222, end: 20170316
  3. BENDAMUSTINE ACCORD [Suspect]
     Active Substance: BENDAMUSTINE
     Indication: T-CELL LYMPHOMA
     Dosage: 120 MG/M2, DAY1 AND D2, CYCLIC
     Route: 042
     Dates: start: 20170109, end: 20170131
  4. OXALIPLATIN. [Suspect]
     Active Substance: OXALIPLATIN
     Indication: T-CELL LYMPHOMA
     Dosage: 190 MG, CYCLIC
     Route: 042
     Dates: start: 20161108, end: 20161205
  5. ROMIDEPSINE [Suspect]
     Active Substance: ROMIDEPSIN
     Indication: T-CELL LYMPHOMA
     Dosage: UNK, CYCLIC
     Route: 042
     Dates: start: 20170419, end: 20170531
  6. ETOPOSIDE MYLAN [Suspect]
     Active Substance: ETOPOSIDE
     Indication: T-CELL LYMPHOMA
     Dosage: 500 MG, DAY 1 AND D2, CYCLIC
     Route: 042
     Dates: start: 20170222, end: 20170316

REACTIONS (2)
  - Second primary malignancy [Not Recovered/Not Resolved]
  - Acute myeloid leukaemia [Not Recovered/Not Resolved]

NARRATIVE: CASE EVENT DATE: 20170608
